FAERS Safety Report 9819892 (Version 3)
Quarter: 2014Q2

REPORT INFORMATION
  Report Type: Spontaneous
  Country: US (occurrence: US)
  Receive Date: 20140116
  Receipt Date: 20140415
  Transmission Date: 20141212
  Serious: No
  Sender: FDA-Public Use
  Company Number: US-009507513-1401USA000934

PATIENT
  Age: 17 Year
  Sex: Female
  Weight: 71.66 kg

DRUGS (2)
  1. NEXPLANON [Suspect]
     Dosage: 2 UNK, UNK
     Route: 059
     Dates: start: 20131226, end: 20131226
  2. NEXPLANON [Suspect]
     Dosage: UNK
     Route: 059
     Dates: start: 20131226

REACTIONS (3)
  - Device difficult to use [Recovered/Resolved]
  - Implant site bruising [Recovering/Resolving]
  - Product quality issue [Unknown]
